FAERS Safety Report 9728175 (Version 1)
Quarter: 2013Q4

REPORT INFORMATION
  Report Type: Spontaneous
  Country: US (occurrence: None)
  Receive Date: 20131202
  Receipt Date: 20131202
  Transmission Date: 20140711
  Serious: Yes (Other)
  Sender: FDA-Public Use
  Company Number: SYM-2013-13473

PATIENT
  Age: 62 Year
  Sex: Female
  Weight: 96.36 kg

DRUGS (5)
  1. EFFEXOR [Suspect]
     Indication: DEPRESSION
  2. EFFEXOR [Suspect]
  3. XYREM [Suspect]
     Route: 048
     Dates: start: 20130506, end: 201305
  4. XYREM [Suspect]
     Route: 048
     Dates: start: 20130506, end: 201305
  5. ASACOL HC (MESALAZINE) (MESALAZINE) [Concomitant]

REACTIONS (3)
  - Headache [None]
  - Depression [None]
  - Condition aggravated [None]
